FAERS Safety Report 6582373-7 (Version None)
Quarter: 2010Q1

REPORT INFORMATION
  Report Type: 
  Country: None (occurrence: None)
  Receive Date: 20100216
  Receipt Date: 20100205
  Transmission Date: 20100710
  Serious: Yes (Death)
  Sender: FDA-Public Use
  Company Number: DE-GENZYME-POMP-1000849

PATIENT
  Sex: Male

DRUGS (1)
  1. MYOZYME [Suspect]
     Indication: GLYCOGEN STORAGE DISEASE TYPE II

REACTIONS (2)
  - CONDITION AGGRAVATED [None]
  - GLYCOGEN STORAGE DISEASE TYPE II [None]
